FAERS Safety Report 6840308-3 (Version None)
Quarter: 2010Q3

REPORT INFORMATION
  Report Type: 
  Country: None (occurrence: None)
  Receive Date: 20100714
  Receipt Date: 20100705
  Transmission Date: 20110219
  Serious: Yes (Other)
  Sender: FDA-Public Use
  Company Number: JP-CEPHALON-2010003208

PATIENT
  Sex: Male

DRUGS (7)
  1. TRISENOX [Suspect]
     Indication: ACUTE PROMYELOCYTIC LEUKAEMIA
     Route: 041
     Dates: start: 20091201, end: 20100210
  2. TRISENOX [Suspect]
     Route: 041
     Dates: start: 20100525, end: 20100530
  3. TRISENOX [Suspect]
     Route: 041
     Dates: start: 20100603
  4. MARZULENE [Concomitant]
     Indication: GASTRITIS PROPHYLAXIS
     Route: 048
     Dates: start: 20100524, end: 20100617
  5. URSO 250 [Concomitant]
     Indication: PROPHYLAXIS
     Route: 048
     Dates: start: 20100524, end: 20100607
  6. COTRIM [Concomitant]
     Indication: INFECTION PROPHYLAXIS
     Route: 048
     Dates: start: 20100524, end: 20100617
  7. ALLORIN [Concomitant]
     Indication: HYPERURICAEMIA
     Route: 048
     Dates: start: 20100524, end: 20100607

REACTIONS (1)
  - HEPATIC FUNCTION ABNORMAL [None]
